FAERS Safety Report 5058911-2 (Version None)
Quarter: 2006Q2

REPORT INFORMATION
  Report Type: 
  Country: None (occurrence: None)
  Receive Date: 20060627
  Receipt Date: 20060209
  Transmission Date: 20061013
  Serious: Yes (Hospitalization)
  Sender: FDA-Public Use
  Company Number: 435990

PATIENT
  Sex: Male

DRUGS (1)
  1. XELODA [Suspect]
     Indication: BREAST CANCER
     Dosage: ORAL
     Route: 048
     Dates: end: 20060115

REACTIONS (2)
  - DIARRHOEA [None]
  - PYREXIA [None]
